FAERS Safety Report 9345905 (Version 1)
Quarter: 2013Q2

REPORT INFORMATION
  Report Type: Spontaneous
  Country: BR (occurrence: BR)
  Receive Date: 20130613
  Receipt Date: 20130613
  Transmission Date: 20140414
  Serious: Yes (Hospitalization)
  Sender: FDA-Public Use
  Company Number: BR-PFIZER INC-2013172551

PATIENT
  Sex: Male

DRUGS (1)
  1. CELEBRA [Suspect]
     Dosage: UNK
     Route: 048

REACTIONS (8)
  - Memory impairment [Unknown]
  - Dizziness [Unknown]
  - Insomnia [Unknown]
  - Decreased interest [Unknown]
  - Vomiting [Unknown]
  - Nasal congestion [Unknown]
  - Blood pressure increased [Unknown]
  - Blood glucose increased [Unknown]
